FAERS Safety Report 11354558 (Version 1)
Quarter: 2015Q3

REPORT INFORMATION
  Report Type: Spontaneous
  Country: US (occurrence: US)
  Receive Date: 20150807
  Receipt Date: 20150807
  Transmission Date: 20151125
  Serious: No
  Sender: FDA-Public Use
  Company Number: US-JNJFOC-20150103953

PATIENT
  Age: 54 Year
  Sex: Female
  Weight: 55.34 kg

DRUGS (3)
  1. WOMENS ROGAINE EXTRA STRENGTH [Suspect]
     Active Substance: MINOXIDIL
     Route: 061
  2. THYROID PREPARATION [Concomitant]
     Active Substance: UNSPECIFIED INGREDIENT
     Indication: THYROID DISORDER
     Dosage: 2 PILLS PER DAY
     Route: 065
  3. WOMENS ROGAINE EXTRA STRENGTH [Suspect]
     Active Substance: MINOXIDIL
     Indication: HAIR GROWTH ABNORMAL
     Dosage: FOR A COUPLE OF WEEKS
     Route: 061

REACTIONS (1)
  - Inappropriate schedule of drug administration [Unknown]
